FAERS Safety Report 7301312-4 (Version None)
Quarter: 2010Q4

REPORT INFORMATION
  Report Type: 
  Country: None (occurrence: None)
  Receive Date: 20101229
  Receipt Date: 20101117
  Transmission Date: 20110411
  Serious: No
  Sender: FDA-Public Use
  Company Number: 1000017373

PATIENT
  Age: 74 Year
  Sex: Female

DRUGS (10)
  1. BYSTOLIC [Suspect]
     Indication: ATRIAL FIBRILLATION
     Dosage: ORAL
     Route: 048
  2. DIGOXIN [Concomitant]
  3. TIAZAC (DILTIAZEM HYDROCHLORIDE) (DILTIAZEM HYDROCHLORIDE) [Concomitant]
  4. PREVACID (LANSOPRAZOLE) (LANSOPRAZOLE) [Concomitant]
  5. BENAZEPRIL (BENAZEPRIL) (BENAZEPRIL) [Concomitant]
  6. COUMADIN (WARFARIN) (WARFARIN) [Concomitant]
  7. LIPITOR [Concomitant]
  8. AMIODARONE HCL [Concomitant]
  9. KLONOPIN (CLONAZEPAM) (CLONAZEPAM) [Concomitant]
  10. CELEBREX [Concomitant]

REACTIONS (1)
  - COUGH [None]
